FAERS Safety Report 14722588 (Version 1)
Quarter: 2018Q2

REPORT INFORMATION
  Report Type: Spontaneous
  Country: SE (occurrence: SE)
  Receive Date: 20180405
  Receipt Date: 20180405
  Transmission Date: 20180711
  Serious: Yes (Disabling)
  Sender: FDA-Public Use
  Company Number: SE-TEVA-2018-SE-846750

PATIENT
  Age: 63 Year
  Sex: Male

DRUGS (2)
  1. CIPROFLOXACIN. [Suspect]
     Active Substance: CIPROFLOXACIN
     Indication: URINARY TRACT INFECTION
     Dosage: DOSERING ^1-2^
     Route: 048
     Dates: start: 20161115, end: 20161205
  2. CITODON [Concomitant]
     Active Substance: ACETAMINOPHEN\CODEINE PHOSPHATE
     Route: 065

REACTIONS (2)
  - Tinnitus [Not Recovered/Not Resolved]
  - Hypoacusis [Recovered/Resolved with Sequelae]

NARRATIVE: CASE EVENT DATE: 20161201
